FAERS Safety Report 5150242-5 (Version None)
Quarter: 2006Q4

REPORT INFORMATION
  Report Type: 
  Country: None (occurrence: None)
  Receive Date: 20061108
  Receipt Date: 20061026
  Transmission Date: 20070319
  Serious: Yes (Other)
  Sender: FDA-Public Use
  Company Number: 2006132904

PATIENT
  Age: 42 Year
  Sex: Male
  Weight: 92.5338 kg

DRUGS (1)
  1. LYRICA [Suspect]
     Indication: NEUROPATHY
     Dosage: 200 MG (100 MG, 2 IN 1 D)
     Dates: start: 20061001, end: 20061001

REACTIONS (5)
  - COLITIS [None]
  - DIARRHOEA [None]
  - FEELING ABNORMAL [None]
  - PYREXIA [None]
  - VOMITING [None]
